FAERS Safety Report 23092687 (Version 1)
Quarter: 2023Q4

REPORT INFORMATION
  Report Type: Report from Study
  Country: IT (occurrence: IT)
  Receive Date: 20231021
  Receipt Date: 20231021
  Transmission Date: 20240109
  Serious: Yes (Other)
  Sender: FDA-Public Use
  Company Number: None

PATIENT
  Age: 59 Year
  Sex: Male
  Weight: 77 kg

DRUGS (2)
  1. FLUOROURACIL [Suspect]
     Active Substance: FLUOROURACIL
     Indication: Biliary neoplasm
     Dosage: 780 MG BOLUS AND 4700 MG EVERY 14 DAYS
     Route: 040
     Dates: start: 20230913, end: 20230913
  2. IRINOTECAN [Suspect]
     Active Substance: IRINOTECAN
     Indication: Biliary neoplasm
     Dates: start: 20230913, end: 20230913

REACTIONS (2)
  - Neutropenia [Not Recovered/Not Resolved]
  - Off label use [Not Recovered/Not Resolved]

NARRATIVE: CASE EVENT DATE: 20230913
